FAERS Safety Report 9773126 (Version 1)
Quarter: 2013Q4

REPORT INFORMATION
  Report Type: Spontaneous
  Country: US (occurrence: US)
  Receive Date: 20131219
  Receipt Date: 20131219
  Transmission Date: 20140711
  Serious: Yes (Other)
  Sender: FDA-Public Use
  Company Number: US-ASTRAZENECA-2013SE91126

PATIENT
  Sex: 0

DRUGS (2)
  1. BRILINTA [Suspect]
     Indication: PRODUCT USED FOR UNKNOWN INDICATION
     Dosage: UNK
     Route: 048
  2. DILANTIN [Interacting]
     Route: 065

REACTIONS (2)
  - Drug interaction [Unknown]
  - Convulsion [Unknown]
